FAERS Safety Report 15629727 (Version 1)
Quarter: 2018Q4

REPORT INFORMATION
  Report Type: Spontaneous
  Country: US (occurrence: US)
  Receive Date: 20181116
  Receipt Date: 20181116
  Transmission Date: 20190205
  Serious: Yes (Hospitalization)
  Sender: FDA-Public Use
  Company Number: None

PATIENT
  Age: 57 Year
  Sex: Female

DRUGS (5)
  1. SERTRALINE [Concomitant]
     Active Substance: SERTRALINE HYDROCHLORIDE
  2. IBRANCE [Suspect]
     Active Substance: PALBOCICLIB
     Indication: NEOPLASM MALIGNANT
     Dosage: ?          OTHER FREQUENCY:QD FOR 21 DAYS;?
     Route: 048
     Dates: start: 20170123
  3. FEMARA [Concomitant]
     Active Substance: LETROZOLE
  4. CALCIUM [Concomitant]
     Active Substance: CALCIUM
  5. ADVIL [Concomitant]
     Active Substance: IBUPROFEN

REACTIONS (4)
  - Stomatitis [None]
  - Alopecia [None]
  - Nausea [None]
  - Fatigue [None]
